FAERS Safety Report 7713855-X (Version None)
Quarter: 2011Q3

REPORT INFORMATION
  Report Type: 
  Country: None (occurrence: None)
  Receive Date: 20110826
  Receipt Date: 20110822
  Transmission Date: 20111222
  Serious: Yes (Hospitalization, Other)
  Sender: FDA-Public Use
  Company Number: US-ELI_LILLY_AND_COMPANY-US201104002730

PATIENT
  Sex: Male
  Weight: 122.45 kg

DRUGS (12)
  1. DYAZIDE [Concomitant]
  2. GLUCOVANCE [Concomitant]
  3. BYETTA [Suspect]
     Indication: PRODUCT USED FOR UNKNOWN INDICATION
     Dosage: 5 UG, UNK
     Dates: start: 20070118
  4. LISINOPRIL [Concomitant]
     Indication: BLOOD PRESSURE
  5. LANTUS [Concomitant]
     Indication: DIABETES MELLITUS
  6. PRILOSEC [Concomitant]
     Dosage: 20 MG, QD
  7. CARVEDILOL [Concomitant]
     Indication: BLOOD PRESSURE
  8. GLYBURIDE [Concomitant]
     Indication: DIABETES MELLITUS
  9. ASPIRIN [Concomitant]
     Dosage: 81 MG, QD
  10. LIPITOR [Concomitant]
     Dosage: 20 MG, QD
  11. ZESTRIL [Concomitant]
     Dosage: 10 MG, QD
  12. SPIRIVA [Concomitant]

REACTIONS (3)
  - OFF LABEL USE [None]
  - PANCREATITIS ACUTE [None]
  - CHOLECYSTITIS CHRONIC [None]
